FAERS Safety Report 17015518 (Version 11)
Quarter: 2021Q4

REPORT INFORMATION
  Report Type: Other
  Country: DE (occurrence: DE)
  Receive Date: 20191111
  Receipt Date: 20211115
  Transmission Date: 20220303
  Serious: No
  Sender: FDA-Public Use
  Company Number: DE-ROCHE-2120407

PATIENT
  Age: 47 Year
  Sex: Female

DRUGS (8)
  1. COMIRNATY [Suspect]
     Active Substance: TOZINAMERAN
     Indication: COVID-19 prophylaxis
     Dosage: FIRST VACCINE
     Route: 065
     Dates: start: 202105
  2. COMIRNATY [Suspect]
     Active Substance: TOZINAMERAN
     Dosage: SECOND VACCINE
     Route: 065
     Dates: start: 202106
  3. OCREVUS [Suspect]
     Active Substance: OCRELIZUMAB
     Indication: Relapsing-remitting multiple sclerosis
     Route: 042
     Dates: start: 20180503, end: 20180503
  4. OCREVUS [Suspect]
     Active Substance: OCRELIZUMAB
     Route: 042
     Dates: start: 20180517
  5. OCREVUS [Suspect]
     Active Substance: OCRELIZUMAB
     Route: 042
     Dates: start: 20181112
  6. OCREVUS [Suspect]
     Active Substance: OCRELIZUMAB
     Route: 042
     Dates: start: 202101
  7. ACYCLOVIR [Concomitant]
     Active Substance: ACYCLOVIR
     Route: 042
  8. SODIUM CHLORIDE [Concomitant]
     Active Substance: SODIUM CHLORIDE
     Route: 042

REACTIONS (2)
  - B-lymphocyte count decreased [Not Recovered/Not Resolved]
  - Body temperature increased [Recovered/Resolved]

NARRATIVE: CASE EVENT DATE: 20210601
